FAERS Safety Report 10949662 (Version 1)
Quarter: 2015Q1

REPORT INFORMATION
  Report Type: Spontaneous
  Country: US (occurrence: US)
  Receive Date: 20150324
  Receipt Date: 20150324
  Transmission Date: 20150721
  Serious: Yes (Other)
  Sender: FDA-Public Use
  Company Number: US-AMGEN-USASP2014086346

PATIENT
  Age: 27 Day
  Sex: Male

DRUGS (4)
  1. PRENATAL VITAMINS                  /07499601/ [Concomitant]
     Dosage: UNK
     Route: 063
     Dates: start: 201401
  2. ENBREL [Suspect]
     Active Substance: ETANERCEPT
     Indication: EXPOSURE DURING BREAST FEEDING
     Dosage: 50 MG, QWK
     Route: 063
     Dates: start: 201302
  3. FOLIC ACID. [Concomitant]
     Active Substance: FOLIC ACID
     Dosage: UNK
     Route: 064
     Dates: start: 200411, end: 201406
  4. VITAMIN D                          /00107901/ [Concomitant]
     Active Substance: ERGOCALCIFEROL
     Dosage: UNK
     Route: 064
     Dates: end: 201402

REACTIONS (3)
  - Gastrooesophageal reflux disease [Unknown]
  - Exposure during breast feeding [Not Recovered/Not Resolved]
  - Bronchiolitis [Unknown]

NARRATIVE: CASE EVENT DATE: 201410
